FAERS Safety Report 21934838 (Version 4)
Quarter: 2023Q1

REPORT INFORMATION
  Report Type: Report from Study
  Country: GB (occurrence: GB)
  Receive Date: 20230201
  Receipt Date: 20230329
  Transmission Date: 20230417
  Serious: Yes (Death, Hospitalization, Other)
  Sender: FDA-Public Use
  Company Number: GB-CELLTRION INC.-2023GB001948

PATIENT

DRUGS (29)
  1. HERZUMA [Suspect]
     Active Substance: TRASTUZUMAB-PKRB
     Indication: Breast cancer metastatic
     Dosage: 441 MG (FREQUENCY NOT REPORTED)
     Route: 042
     Dates: start: 20180525
  2. TRASTUZUMAB [Suspect]
     Active Substance: TRASTUZUMAB
     Indication: Breast cancer metastatic
     Dosage: 390 MG EVERY 3 WEEKS (CUMULATIVE DOSE TO FIRST REACTION: 12870.0 MG)
     Route: 042
     Dates: start: 20170310, end: 20171117
  3. TRASTUZUMAB [Suspect]
     Active Substance: TRASTUZUMAB
     Dosage: 390 MG EVERY 3 WEEKS (CUMULATIVE DOSE TO FIRST REACTION: 12870.0 MG)
     Route: 042
     Dates: start: 20170310, end: 20171117
  4. TRASTUZUMAB [Suspect]
     Active Substance: TRASTUZUMAB
     Dosage: 420 MG EVERY 3 WEEKS (CUMULATIVE DOSE TO FIRST REACTION: 8400.0 MG)
     Route: 042
     Dates: start: 20171208, end: 20180504
  5. TRASTUZUMAB [Suspect]
     Active Substance: TRASTUZUMAB
     Dosage: 420 MG EVERY 3 WEEKS (CUMULATIVE DOSE TO FIRST REACTION: 8400.0 MG)
     Route: 042
     Dates: start: 20171208, end: 20180504
  6. HERCEPTIN [Suspect]
     Active Substance: TRASTUZUMAB
     Indication: Breast cancer metastatic
     Dosage: 520 MG EVERY 3 WEEKS (HERCEPTIN)
     Route: 042
     Dates: start: 20170216, end: 20170309
  7. HERCEPTIN [Suspect]
     Active Substance: TRASTUZUMAB
     Dosage: 520 MG EVERY 3 WEEKS (HERCEPTIN)
     Route: 042
     Dates: start: 20170216, end: 20170309
  8. HERCEPTIN [Suspect]
     Active Substance: TRASTUZUMAB
     Dosage: 390 MG EVERY 3 WEEKS
     Route: 042
     Dates: start: 20170310
  9. HERCEPTIN [Suspect]
     Active Substance: TRASTUZUMAB
     Dosage: EVERY 3 WEEKS (DOSE NOT REPORTED)
     Route: 042
     Dates: start: 20171208, end: 20180504
  10. DOCETAXEL [Suspect]
     Active Substance: DOCETAXEL
     Indication: Breast cancer metastatic
     Dosage: 132 MG EVERY 3 WEEKS
     Route: 042
     Dates: start: 20170216, end: 20170602
  11. PERTUZUMAB [Suspect]
     Active Substance: PERTUZUMAB
     Indication: Breast cancer metastatic
     Dosage: 840 MG EVERY 3 WEEKS
     Route: 042
     Dates: start: 20170216, end: 20170309
  12. PERTUZUMAB [Suspect]
     Active Substance: PERTUZUMAB
     Dosage: 840 MG EVERY 3 WEEKS
     Route: 042
     Dates: start: 20170216, end: 20170309
  13. PERTUZUMAB [Suspect]
     Active Substance: PERTUZUMAB
     Dosage: 420 MG EVERY 3 WEEKS (CUMULATIVE DOSE TO FIRST REACTION: 13860.0 MG)
     Route: 042
     Dates: start: 20170310
  14. PERTUZUMAB [Suspect]
     Active Substance: PERTUZUMAB
     Dosage: 420 MG EVERY 3 WEEKS (CUMULATIVE DOSE TO FIRST REACTION: 13860.0 MG)
     Route: 042
     Dates: start: 20170310
  15. CALCIUM CARBONATE\CHOLECALCIFEROL [Concomitant]
     Active Substance: CALCIUM CARBONATE\CHOLECALCIFEROL
     Dosage: UNK
     Dates: start: 20220429
  16. CALCIUM CARBONATE\CHOLECALCIFEROL [Concomitant]
     Active Substance: CALCIUM CARBONATE\CHOLECALCIFEROL
     Dosage: 750 MG
  17. DENOSUMAB [Concomitant]
     Active Substance: DENOSUMAB
     Dosage: 120 MG
     Route: 058
     Dates: start: 20170714
  18. DEXAMETHASONE [Concomitant]
     Active Substance: DEXAMETHASONE
     Dosage: 8 MG
     Route: 048
     Dates: start: 20170216, end: 20170622
  19. LOPERAMIDE [Concomitant]
     Active Substance: LOPERAMIDE
     Indication: Constipation
     Dosage: UNK
     Route: 048
     Dates: start: 20170714
  20. POLYETHYLENE GLYCOLS [Concomitant]
     Active Substance: POLYETHYLENE GLYCOLS
     Indication: Constipation
  21. METOCLOPRAMIDE [Concomitant]
     Active Substance: METOCLOPRAMIDE
     Dosage: 10 MG
     Route: 048
     Dates: start: 20170216, end: 20170602
  22. MORPHINE SULFATE [Concomitant]
     Active Substance: MORPHINE SULFATE
     Dosage: 10 MG
     Route: 048
     Dates: start: 20190322, end: 20190328
  23. OMEPRAZOLE [Concomitant]
     Active Substance: OMEPRAZOLE
     Dosage: UNK
     Dates: start: 20170331, end: 201710
  24. ONDANSETRON [Concomitant]
     Active Substance: ONDANSETRON
     Dosage: 8 MG
     Route: 048
     Dates: start: 20170216, end: 20170602
  25. ACETAMINOPHEN [Concomitant]
     Active Substance: ACETAMINOPHEN
     Dosage: 1000 MG, BID
     Route: 048
     Dates: start: 20220429
  26. QUININE SULFATE [Concomitant]
     Active Substance: QUININE SULFATE
     Indication: Muscle spasms
     Dosage: 200 MG EVERY 1 DAY
     Route: 048
     Dates: start: 20180906
  27. TRAMADOL [Concomitant]
     Active Substance: TRAMADOL
     Dosage: 50 MG EVERY 4 DAYS
     Route: 048
  28. SOLIFENACIN [Concomitant]
     Active Substance: SOLIFENACIN
  29. MIDAZOLAM [Concomitant]
     Active Substance: MIDAZOLAM

REACTIONS (4)
  - Death [Fatal]
  - Tumour obstruction [Recovered/Resolved with Sequelae]
  - Small intestinal obstruction [Recovered/Resolved]
  - Pancytopenia [Recovered/Resolved]

NARRATIVE: CASE EVENT DATE: 20190201
